FAERS Safety Report 12852868 (Version 1)
Quarter: 2016Q4

REPORT INFORMATION
  Report Type: Spontaneous
  Country: US (occurrence: US)
  Receive Date: 20161017
  Receipt Date: 20161017
  Transmission Date: 20170207
  Serious: No
  Sender: FDA-Public Use
  Company Number: US-JAZZ-2016-US-013930

PATIENT
  Sex: Male

DRUGS (28)
  1. FLONASE [Suspect]
     Active Substance: FLUTICASONE PROPIONATE
     Indication: PRODUCT USED FOR UNKNOWN INDICATION
     Dosage: UNK
     Dates: end: 201607
  2. CLONAZEPAM. [Concomitant]
     Active Substance: CLONAZEPAM
  3. LATUDA [Concomitant]
     Active Substance: LURASIDONE HYDROCHLORIDE
  4. VYVANSE [Concomitant]
     Active Substance: LISDEXAMFETAMINE DIMESYLATE
  5. TRAMADOL HCL [Concomitant]
     Active Substance: TRAMADOL HYDROCHLORIDE
  6. VENTOLIN [Concomitant]
     Active Substance: ALBUTEROL SULFATE
  7. MECLIZINE [Suspect]
     Active Substance: MECLIZINE HYDROCHLORIDE
     Indication: PRODUCT USED FOR UNKNOWN INDICATION
     Dosage: UNK
     Dates: end: 201607
  8. ADDERALL [Concomitant]
     Active Substance: AMPHETAMINE ASPARTATE\AMPHETAMINE SULFATE\DEXTROAMPHETAMINE SACCHARATE\DEXTROAMPHETAMINE SULFATE
  9. NASONEX [Concomitant]
     Active Substance: MOMETASONE FUROATE
  10. XYREM [Suspect]
     Active Substance: SODIUM OXYBATE
     Indication: NARCOLEPSY
     Dosage: 2.25 G, BID
     Route: 048
     Dates: start: 201107, end: 201107
  11. LAMICTAL [Concomitant]
     Active Substance: LAMOTRIGINE
  12. GEMFIBROZIL. [Concomitant]
     Active Substance: GEMFIBROZIL
  13. ABILIFY [Concomitant]
     Active Substance: ARIPIPRAZOLE
  14. SIMVASTATIN. [Concomitant]
     Active Substance: SIMVASTATIN
  15. XYREM [Suspect]
     Active Substance: SODIUM OXYBATE
     Dosage: DOSE ADJUSTMENTS
     Route: 048
     Dates: start: 201107, end: 201204
  16. WELLBUTRIN [Concomitant]
     Active Substance: BUPROPION HYDROCHLORIDE
  17. SYNTHROID [Concomitant]
     Active Substance: LEVOTHYROXINE SODIUM
  18. FOCUS [Concomitant]
  19. ZYRTEC [Concomitant]
     Active Substance: CETIRIZINE HYDROCHLORIDE
  20. XYREM [Suspect]
     Active Substance: SODIUM OXYBATE
     Dosage: 4.5 G, BID
     Route: 048
     Dates: start: 201204
  21. DEPAKOTE [Concomitant]
     Active Substance: DIVALPROEX SODIUM
  22. IBUPROFEN. [Concomitant]
     Active Substance: IBUPROFEN
  23. LISINOPRIL + HIDROCLOROTIAZIDA [Concomitant]
     Active Substance: HYDROCHLOROTHIAZIDE\LISINOPRIL
  24. VITAMIN B12 [Concomitant]
     Active Substance: CYANOCOBALAMIN
  25. NUVIGIL [Concomitant]
     Active Substance: ARMODAFINIL
  26. ADVAIR HFA [Concomitant]
     Active Substance: FLUTICASONE PROPIONATE\SALMETEROL XINAFOATE
  27. LEVOTHYROXINE SODIUM. [Concomitant]
     Active Substance: LEVOTHYROXINE SODIUM
  28. MULTIVITAMINS WITH IRON [Concomitant]
     Active Substance: IRON\VITAMINS

REACTIONS (2)
  - Unevaluable event [Unknown]
  - Drug ineffective [Unknown]
